FAERS Safety Report 4421354-6 (Version None)
Quarter: 2004Q3

REPORT INFORMATION
  Report Type: 
  Country: None (occurrence: None)
  Receive Date: 20040804
  Receipt Date: 20040721
  Transmission Date: 20050211
  Serious: No
  Sender: FDA-Public Use
  Company Number: 2003168042GB

PATIENT
  Age: 45 Year
  Sex: Female

DRUGS (11)
  1. DOXORUBICIN HCL [Suspect]
     Indication: BREAST CANCER METASTATIC
     Dosage: IV
     Route: 042
  2. OMEPRAZOLE [Suspect]
  3. DOCETAXEL (DOCETAXEL) [Suspect]
     Indication: BREAST CANCER METASTATIC
     Dosage: IV
     Route: 042
  4. ERYTHROMYCIN [Suspect]
     Indication: PROPHYLAXIS
     Dates: start: 19950101
  5. GRANISETRON (GRANISETRON) [Concomitant]
  6. DEXAMETHASONE [Concomitant]
  7. MORPHINE [Concomitant]
  8. IBUPROFEN [Concomitant]
  9. METOCLOPRAMIDE [Concomitant]
  10. GENTAMICIN SULFATE [Concomitant]
  11. CEFTAZIDIME SODIUM [Concomitant]

REACTIONS (12)
  - CLOSTRIDIUM COLITIS [None]
  - DIARRHOEA HAEMORRHAGIC [None]
  - DRUG INTERACTION [None]
  - FEBRILE NEUTROPENIA [None]
  - HAEMATEMESIS [None]
  - JAUNDICE CHOLESTATIC [None]
  - LIVER FUNCTION TEST ABNORMAL [None]
  - MOUTH ULCERATION [None]
  - RASH ERYTHEMATOUS [None]
  - RASH MACULO-PAPULAR [None]
  - THERAPY NON-RESPONDER [None]
  - ULCER [None]
